FAERS Safety Report 7607390-7 (Version None)
Quarter: 2011Q3

REPORT INFORMATION
  Report Type: 
  Country: None (occurrence: None)
  Receive Date: 20110713
  Receipt Date: 20110630
  Transmission Date: 20111222
  Serious: Yes (Other)
  Sender: FDA-Public Use
  Company Number: US-MYLANLABS-2011S1013916

PATIENT
  Age: 66 Year
  Sex: Male
  Weight: 91.04 kg

DRUGS (7)
  1. LOVASTATIN [Suspect]
     Indication: BLOOD CHOLESTEROL INCREASED
     Dates: start: 19960101
  2. CHANTIX [Suspect]
     Route: 048
     Dates: start: 20110401, end: 20110611
  3. CHANTIX [Suspect]
     Indication: SMOKING CESSATION THERAPY
     Route: 048
     Dates: start: 20110401, end: 20110401
  4. CHANTIX [Suspect]
     Route: 048
     Dates: start: 20110401, end: 20110611
  5. CHANTIX [Suspect]
     Indication: DYSPNOEA
     Route: 048
     Dates: start: 20110401, end: 20110401
  6. NADOLOL [Suspect]
     Indication: WOLFF-PARKINSON-WHITE SYNDROME
     Dates: start: 19860101
  7. LABETALOL HCL [Concomitant]

REACTIONS (6)
  - CARDIAC FLUTTER [None]
  - DRUG INTERACTION [None]
  - INSOMNIA [None]
  - WEIGHT INCREASED [None]
  - EXTRASYSTOLES [None]
  - ABNORMAL DREAMS [None]
